FAERS Safety Report 23718167 (Version 2)
Quarter: 2024Q2

REPORT INFORMATION
  Report Type: Spontaneous
  Country: US (occurrence: US)
  Receive Date: 20240408
  Receipt Date: 20240423
  Transmission Date: 20240716
  Serious: No
  Sender: FDA-Public Use
  Company Number: US-SA-SAC20240403001419

PATIENT
  Age: 22 Year
  Sex: Male

DRUGS (6)
  1. TZIELD [Suspect]
     Active Substance: TEPLIZUMAB-MZWV
     Indication: Diabetes prophylaxis
     Dosage: 107.9 MCG
     Route: 042
     Dates: start: 20240329, end: 20240329
  2. TZIELD [Suspect]
     Active Substance: TEPLIZUMAB-MZWV
     Dosage: 207.5 UG, 1X
     Route: 042
     Dates: start: 20240330, end: 20240330
  3. TZIELD [Suspect]
     Active Substance: TEPLIZUMAB-MZWV
     Dosage: 415 UG, 1X
     Route: 042
     Dates: start: 20240331, end: 20240331
  4. TZIELD [Suspect]
     Active Substance: TEPLIZUMAB-MZWV
     Dosage: 830 UG, 1X
     Dates: start: 20240401, end: 20240401
  5. TZIELD [Suspect]
     Active Substance: TEPLIZUMAB-MZWV
     Dosage: 1709.8 UG, QD
     Dates: start: 20240402, end: 20240407
  6. IBUPROFEN [Concomitant]
     Active Substance: IBUPROFEN
     Indication: Premedication
     Dosage: UNK
     Dates: start: 20240329

REACTIONS (3)
  - Dyspnoea [Recovered/Resolved]
  - Rash erythematous [Unknown]
  - Skin swelling [Unknown]

NARRATIVE: CASE EVENT DATE: 20240101
